FAERS Safety Report 9933231 (Version 2)
Quarter: 2014Q1

REPORT INFORMATION
  Report Type: Spontaneous
  Country: US (occurrence: US)
  Receive Date: 20140228
  Receipt Date: 20140228
  Transmission Date: 20141002
  Serious: No
  Sender: FDA-Public Use
  Company Number: US-ABBVIE-13P-163-1170597-00

PATIENT
  Sex: Male
  Weight: 102.15 kg

DRUGS (3)
  1. ANDROGEL [Suspect]
     Indication: BLOOD TESTOSTERONE DECREASED
     Route: 061
     Dates: start: 2011
  2. ANDROGEL [Suspect]
     Indication: BLOOD TESTOSTERONE DECREASED
     Route: 061
     Dates: start: 2009, end: 2011
  3. ACYCLOVIR [Concomitant]
     Indication: HERPES VIRUS INFECTION
     Dates: start: 1995

REACTIONS (2)
  - Hair growth abnormal [Not Recovered/Not Resolved]
  - Incorrect dose administered [Unknown]
